FAERS Safety Report 20002439 (Version 1)
Quarter: 2021Q4

REPORT INFORMATION
  Report Type: Spontaneous
  Country: CZ (occurrence: CZ)
  Receive Date: 20211027
  Receipt Date: 20211027
  Transmission Date: 20220303
  Serious: Yes (Hospitalization, Other)
  Sender: FDA-Public Use
  Company Number: CZ-FRESENIUS KABI-FK202111588

PATIENT
  Sex: Male

DRUGS (7)
  1. LEUCOVORIN CALCIUM [Suspect]
     Active Substance: LEUCOVORIN CALCIUM
     Indication: Rectal cancer
     Dosage: FOLFOX CHEMOTHERAPY
     Route: 065
     Dates: start: 201810, end: 201906
  2. LEUCOVORIN CALCIUM [Suspect]
     Active Substance: LEUCOVORIN CALCIUM
     Dosage: FOLFIRI TREATMENT
     Route: 065
     Dates: start: 202010
  3. OXALIPLATIN [Suspect]
     Active Substance: OXALIPLATIN
     Indication: Rectal cancer
     Dosage: FOLFOX CHEMOTHERAPY
     Route: 065
     Dates: start: 201810, end: 201906
  4. IRINOTECAN [Suspect]
     Active Substance: IRINOTECAN
     Indication: Rectal cancer
     Dosage: FOLFIRI TREATMENT
     Route: 065
     Dates: start: 202010
  5. FLUOROURACIL [Concomitant]
     Active Substance: FLUOROURACIL
     Indication: Rectal cancer
     Dosage: FOLFOX CHEMOTHERAPY
     Route: 065
     Dates: start: 201810, end: 201906
  6. CETUXIMAB [Concomitant]
     Active Substance: CETUXIMAB
     Indication: Rectal cancer
     Route: 065
     Dates: start: 201810, end: 201911
  7. TIPIRACIL HYDROCHLORIDE\TRIFLURIDINE [Concomitant]
     Active Substance: TIPIRACIL HYDROCHLORIDE\TRIFLURIDINE
     Indication: Rectal cancer
     Route: 065
     Dates: start: 202012

REACTIONS (4)
  - Toxic cardiomyopathy [Unknown]
  - Drug intolerance [Unknown]
  - Vomiting [Unknown]
  - Skin toxicity [Unknown]
